FAERS Safety Report 8881038 (Version 1)
Quarter: 2012Q4

REPORT INFORMATION
  Report Type: 
  Country: US (occurrence: US)
  Receive Date: 20121101
  Receipt Date: 20121101
  Transmission Date: 20130627
  Serious: No
  Sender: FDA-Public Use
  Company Number: US-BAYER-2012-111934

PATIENT
  Age: 68 Year
  Sex: Female
  Weight: 66.67 kg

DRUGS (3)
  1. ALEVE CAPLET/TABLET,MIDOL EXTENDED RELIEF CAPLET [Suspect]
     Indication: GENERAL BODY PAIN
     Dosage: 1 DF, QD
     Route: 048
     Dates: start: 20121017, end: 20121017
  2. BAYER GENUINE ASPIRIN ORIGINAL STRENGTH [Suspect]
     Dosage: 2
     Route: 048
     Dates: start: 20121014
  3. THYROID MEDICATION [Concomitant]

REACTIONS (1)
  - Urticaria [Not Recovered/Not Resolved]
